FAERS Safety Report 18764883 (Version 1)
Quarter: 2021Q1

REPORT INFORMATION
  Report Type: Spontaneous
  Country: CN (occurrence: CN)
  Receive Date: 20210121
  Receipt Date: 20210121
  Transmission Date: 20210419
  Serious: Yes (Other)
  Sender: FDA-Public Use
  Company Number: CN-ROCHE-2752384

PATIENT
  Age: 70 Year
  Sex: Female

DRUGS (18)
  1. 5?FLUOROURACIL [Concomitant]
     Active Substance: FLUOROURACIL
     Dates: start: 20181120
  2. HERCEPTIN [Suspect]
     Active Substance: TRASTUZUMAB
     Indication: GASTRIC CANCER
     Route: 065
     Dates: start: 20170804
  3. OXALIPLATIN. [Concomitant]
     Active Substance: OXALIPLATIN
     Dates: start: 20170825
  4. TEGAFUR [Concomitant]
     Active Substance: TEGAFUR
     Indication: GASTRIC CANCER
  5. XELODA [Suspect]
     Active Substance: CAPECITABINE
     Route: 048
     Dates: start: 20171009
  6. IRINOTECAN [Concomitant]
     Active Substance: IRINOTECAN
     Indication: GASTRIC CANCER
     Dates: start: 20180418
  7. 5?FLUOROURACIL [Concomitant]
     Active Substance: FLUOROURACIL
     Indication: GASTRIC CANCER
     Dates: start: 20180418
  8. XELODA [Suspect]
     Active Substance: CAPECITABINE
     Indication: GASTRIC CANCER
     Route: 048
     Dates: start: 20170804
  9. XELODA [Suspect]
     Active Substance: CAPECITABINE
     Route: 048
     Dates: start: 20190107
  10. HERCEPTIN [Suspect]
     Active Substance: TRASTUZUMAB
     Route: 065
     Dates: start: 20170825
  11. HERCEPTIN [Suspect]
     Active Substance: TRASTUZUMAB
     Route: 065
     Dates: start: 20171009
  12. IRINOTECAN [Concomitant]
     Active Substance: IRINOTECAN
     Dates: start: 20181120
  13. CALCIUM FOLINATE [Concomitant]
     Active Substance: LEUCOVORIN CALCIUM
     Indication: GASTRIC CANCER
     Dates: start: 20180418
  14. HERCEPTIN [Suspect]
     Active Substance: TRASTUZUMAB
     Route: 065
     Dates: start: 20171030
  15. OXALIPLATIN. [Concomitant]
     Active Substance: OXALIPLATIN
     Indication: GASTRIC CANCER
     Dates: start: 20170804
  16. XELODA [Suspect]
     Active Substance: CAPECITABINE
     Route: 048
     Dates: start: 20170825
  17. CALCIUM FOLINATE [Concomitant]
     Active Substance: LEUCOVORIN CALCIUM
     Dates: start: 20181120
  18. XELODA [Suspect]
     Active Substance: CAPECITABINE
     Route: 048
     Dates: start: 20171030

REACTIONS (3)
  - Intestinal obstruction [Recovering/Resolving]
  - Mouth ulceration [Unknown]
  - Abdominal discomfort [Unknown]
